FAERS Safety Report 24181701 (Version 1)
Quarter: 2024Q3

REPORT INFORMATION
  Report Type: Spontaneous
  Country: DE (occurrence: DE)
  Receive Date: 20240807
  Receipt Date: 20240807
  Transmission Date: 20241017
  Serious: Yes (Other)
  Sender: JOHNSON AND JOHNSON
  Company Number: DE-BAYER-2024A113353

PATIENT

DRUGS (1)
  1. RIVAROXABAN [Suspect]
     Active Substance: RIVAROXABAN
     Indication: Product used for unknown indication
     Route: 048

REACTIONS (4)
  - Anti factor Xa activity decreased [Unknown]
  - Renal impairment [Unknown]
  - International normalised ratio increased [Unknown]
  - Liver disorder [Unknown]
